FAERS Safety Report 18552364 (Version 1)
Quarter: 2020Q4

REPORT INFORMATION
  Report Type: Spontaneous
  Country: US (occurrence: US)
  Receive Date: 20201127
  Receipt Date: 20201127
  Transmission Date: 20210114
  Serious: No
  Sender: FDA-Public Use
  Company Number: US-JNJFOC-20201143588

PATIENT
  Age: 87 Year
  Sex: Male
  Weight: 81.27 kg

DRUGS (1)
  1. XARELTO [Suspect]
     Active Substance: RIVAROXABAN
     Indication: PRODUCT USED FOR UNKNOWN INDICATION
     Route: 048

REACTIONS (3)
  - Product packaging quantity issue [Unknown]
  - Cardioversion [Unknown]
  - Stent placement [Unknown]

NARRATIVE: CASE EVENT DATE: 20201123
